FAERS Safety Report 6817748-1 (Version None)
Quarter: 2010Q3

REPORT INFORMATION
  Report Type: 
  Country: None (occurrence: None)
  Receive Date: 20100706
  Receipt Date: 20100603
  Transmission Date: 20110219
  Serious: No
  Sender: FDA-Public Use
  Company Number: US-BAYER-201016553BCC

PATIENT
  Age: 50 Year
  Sex: Male
  Weight: 109 kg

DRUGS (3)
  1. ALEVE (CAPLET) [Suspect]
     Indication: TOOTHACHE
     Dosage: TOTAL DAILY DOSE: 440 MG  UNIT DOSE: 220 MG
     Route: 048
     Dates: start: 20100101
  2. LISINOPRIL [Concomitant]
     Route: 065
  3. ASPIRIN [Concomitant]
     Indication: TOOTHACHE
     Route: 065
     Dates: start: 20100603

REACTIONS (1)
  - TOOTHACHE [None]
